FAERS Safety Report 6918229-7 (Version None)
Quarter: 2010Q3

REPORT INFORMATION
  Report Type: 
  Country: None (occurrence: None)
  Receive Date: 20100811
  Receipt Date: 20100728
  Transmission Date: 20110219
  Serious: Yes (Other)
  Sender: FDA-Public Use
  Company Number: US-RB-013259-10

PATIENT
  Age: 80 Year
  Sex: Male

DRUGS (1)
  1. MUCINEX [Suspect]
     Dosage: STARTED 10 MONTHS AGO AS NEEDED, TAKING 1 TABLET EVERY 12 HOURS.
     Route: 048

REACTIONS (1)
  - AMNESIA [None]
